FAERS Safety Report 6943294 (Version 2)
Quarter: 2020Q3

REPORT INFORMATION
  Report Type: Report from Study
  Country: TW (occurrence: TW)
  Receive Date: 20090317
  Receipt Date: 20090406
  Transmission Date: 20201104
  Serious: Yes (Hospitalization)
  Sender: FDA-Public Use
  Company Number: TW-WYE-H08533909

PATIENT
  Age: 56 Year
  Sex: Male
  Weight: 54 kg

DRUGS (3)
  1. AVASTIN [Suspect]
     Active Substance: BEVACIZUMAB
     Indication: RENAL CELL CARCINOMA
     Route: 042
     Dates: start: 20081120, end: 20090226
  2. ROFERON?A [Concomitant]
     Active Substance: INTERFERON ALFA-2A
     Indication: RENAL CELL CARCINOMA
     Dosage: 9 MU 3 TIMES A WEEK
     Route: 058
     Dates: start: 20081120, end: 20090212
  3. ROFERON?A [Concomitant]
     Active Substance: INTERFERON ALFA-2A
     Dosage: 6 MU 3 TIMES A WEEK
     Route: 058
     Dates: start: 20090226, end: 20090309

REACTIONS (4)
  - Lymphadenopathy [Not Recovered/Not Resolved]
  - Calcinosis [None]
  - Spinal osteoarthritis [None]
  - Metastases to abdominal cavity [Not Recovered/Not Resolved]

NARRATIVE: CASE EVENT DATE: 20090308
